FAERS Safety Report 23653884 (Version 1)
Quarter: 2024Q1

REPORT INFORMATION
  Report Type: Report from Study
  Country: US (occurrence: None)
  Receive Date: 20240320
  Receipt Date: 20240320
  Transmission Date: 20240409
  Serious: Yes (Hospitalization)
  Sender: FDA-Public Use
  Company Number: 2024A063302

PATIENT
  Sex: Female
  Weight: 24.8 kg

DRUGS (1)
  1. KOSELUGO [Suspect]
     Active Substance: SELUMETINIB
     Indication: Neurofibromatosis
     Route: 048
     Dates: start: 20221110

REACTIONS (4)
  - Scarlet fever [Recovered/Resolved]
  - Abdominal discomfort [Recovering/Resolving]
  - Oedema [Not Recovered/Not Resolved]
  - Vomiting [Unknown]
